FAERS Safety Report 16201769 (Version 1)
Quarter: 2019Q2

REPORT INFORMATION
  Report Type: Spontaneous
  Country: US (occurrence: US)
  Receive Date: 20190415
  Receipt Date: 20190415
  Transmission Date: 20190711
  Serious: Yes (Other)
  Sender: FDA-Public Use
  Company Number: None

PATIENT
  Age: 54 Year
  Sex: Female
  Weight: 67.32 kg

DRUGS (14)
  1. LISINOPRIL-HYDROCHLOROTHIAZIDE [Concomitant]
     Active Substance: HYDROCHLOROTHIAZIDE\LISINOPRIL
  2. POTASSIUM CHLORIDE. [Concomitant]
     Active Substance: POTASSIUM CHLORIDE
  3. IBUPROFEN. [Concomitant]
     Active Substance: IBUPROFEN
  4. AELASTINE [Concomitant]
  5. FLONASE [Concomitant]
     Active Substance: FLUTICASONE PROPIONATE
  6. COMBIVENT [Concomitant]
     Active Substance: ALBUTEROL SULFATE\IPRATROPIUM BROMIDE
  7. FISH OIL [Concomitant]
     Active Substance: FISH OIL
  8. MULTIVITAMIN [Concomitant]
     Active Substance: VITAMINS
  9. SYMBICORT [Concomitant]
     Active Substance: BUDESONIDE\FORMOTEROL FUMARATE DIHYDRATE
  10. OLOPATADINE. [Concomitant]
     Active Substance: OLOPATADINE
  11. RANITIDINE. [Concomitant]
     Active Substance: RANITIDINE
  12. CETRIZINE [Concomitant]
     Active Substance: CETIRIZINE HYDROCHLORIDE
  13. CAPECITABINE. [Suspect]
     Active Substance: CAPECITABINE
     Indication: COLON NEOPLASM
     Route: 048
     Dates: start: 20190225
  14. ASPIRIN. [Concomitant]
     Active Substance: ASPIRIN

REACTIONS (1)
  - Disease progression [None]
